FAERS Safety Report 5012701-5 (Version None)
Quarter: 2006Q2

REPORT INFORMATION
  Report Type: 
  Country: None (occurrence: None)
  Receive Date: 20060524
  Receipt Date: 20060511
  Transmission Date: 20061013
  Serious: Yes (Life-Threatening)
  Sender: FDA-Public Use
  Company Number: 2006065550

PATIENT
  Age: 80 Year
  Sex: Male

DRUGS (4)
  1. IRINOTECAN HCL [Suspect]
     Indication: NEOPLASM MALIGNANT
     Dosage: 150MG/BODY, INTRAVENOUS
     Route: 042
     Dates: start: 20060105, end: 20060105
  2. IRINOTECAN HCL [Suspect]
     Indication: NEOPLASM MALIGNANT
     Dosage: 150MG/BODY, INTRAVENOUS
     Route: 042
     Dates: start: 20060119, end: 20060330
  3. FLUOROURACIL [Suspect]
     Indication: NEOPLASM MALIGNANT
     Dosage: (2500 MG, IN 3 DAYS), INTRAVENOUS
     Route: 042
     Dates: start: 20060105, end: 20060401
  4. CALCIUM LEVOFOLINATE (CALCIUM LEVOFLOINATE) [Concomitant]

REACTIONS (6)
  - CANCER PAIN [None]
  - DIZZINESS [None]
  - INFUSION RELATED REACTION [None]
  - PERFORMANCE STATUS DECREASED [None]
  - STATUS EPILEPTICUS [None]
  - VOMITING [None]
